FAERS Safety Report 13449685 (Version 1)
Quarter: 2017Q2

REPORT INFORMATION
  Report Type: Spontaneous
  Country: US (occurrence: US)
  Receive Date: 20170417
  Receipt Date: 20170417
  Transmission Date: 20170830
  Serious: No
  Sender: FDA-Public Use
  Company Number: US-GALDERMA-US17000686

PATIENT
  Sex: Female

DRUGS (1)
  1. SOOLANTRA [Suspect]
     Active Substance: IVERMECTIN
     Indication: DERMATITIS
     Route: 061

REACTIONS (3)
  - Erythema [Unknown]
  - Skin burning sensation [Unknown]
  - Product use in unapproved indication [Recovered/Resolved]
